FAERS Safety Report 5481349-0 (Version None)
Quarter: 2007Q4

REPORT INFORMATION
  Report Type: 
  Country: None (occurrence: None)
  Receive Date: 20071010
  Receipt Date: 20071003
  Transmission Date: 20080405
  Serious: Yes (Other)
  Sender: FDA-Public Use
  Company Number: FR-BRISTOL-MYERS SQUIBB COMPANY-13918552

PATIENT
  Age: 42 Year
  Sex: Male

DRUGS (2)
  1. ABILIFY [Suspect]
     Route: 048
     Dates: start: 20060101
  2. XALATAN [Concomitant]
     Indication: INTRAOCULAR PRESSURE DECREASED

REACTIONS (2)
  - OPEN ANGLE GLAUCOMA [None]
  - VISUAL FIELD DEFECT [None]
